FAERS Safety Report 4852971-7 (Version None)
Quarter: 2005Q4

REPORT INFORMATION
  Report Type: 
  Country: None (occurrence: None)
  Receive Date: 20051212
  Receipt Date: 20051125
  Transmission Date: 20060501
  Serious: Yes (Other)
  Sender: FDA-Public Use
  Company Number: 2005EU002668

PATIENT
  Age: 59 Year
  Sex: Female
  Weight: 66.9963 kg

DRUGS (4)
  1. PROGRAF [Suspect]
     Indication: RENAL TRANSPLANT
     Dosage: 5 MG ORAL
     Route: 048
     Dates: start: 20040226
  2. MIMPARA [Suspect]
     Indication: RENAL TRANSPLANT
     Dosage: 30 MG ORAL
     Route: 048
     Dates: start: 20041129
  3. MYCOPHENOLATE MOFETIL (MYCOPHENOLATE MOFETIL) [Concomitant]
  4. CALCITRIOL [Concomitant]

REACTIONS (5)
  - COMPLICATIONS OF TRANSPLANTED KIDNEY [None]
  - DRUG INTERACTION [None]
  - DRUG TOXICITY [None]
  - NEPHROPATHY TOXIC [None]
  - RENAL IMPAIRMENT [None]
